FAERS Safety Report 7236509-5 (Version None)
Quarter: 2011Q1

REPORT INFORMATION
  Report Type: 
  Country: None (occurrence: None)
  Receive Date: 20110120
  Receipt Date: 20110114
  Transmission Date: 20110831
  Serious: Yes (Other)
  Sender: FDA-Public Use
  Company Number: US-TEVA-255579USA

PATIENT
  Age: 16 Year
  Sex: Female

DRUGS (1)
  1. TETRACYCLINE HCL [Suspect]
     Indication: ACNE
     Route: 048
     Dates: start: 20090101, end: 20100901

REACTIONS (4)
  - OPTIC NERVE INJURY [None]
  - VISION BLURRED [None]
  - PAPILLOEDEMA [None]
  - OPTIC NEUROPATHY [None]
